FAERS Safety Report 8308612-X (Version None)
Quarter: 2012Q2

REPORT INFORMATION
  Report Type: 
  Country: None (occurrence: None)
  Receive Date: 20120424
  Receipt Date: 20120417
  Transmission Date: 20120825
  Serious: Yes (Other)
  Sender: FDA-Public Use
  Company Number: BR-ROCHE-CID000000001986269

PATIENT
  Sex: Female

DRUGS (4)
  1. LUCENTIS [Suspect]
     Dosage: 14TH APPLICATION
     Route: 050
  2. MULTIVITAMIN [Concomitant]
  3. LUCENTIS [Suspect]
     Indication: AGE-RELATED MACULAR DEGENERATION
     Dosage: 10 MG/ML
     Route: 050
  4. SIMVASTATIN [Concomitant]

REACTIONS (2)
  - DERMATITIS BULLOUS [None]
  - RASH [None]
